FAERS Safety Report 20361137 (Version 3)
Quarter: 2022Q4

REPORT INFORMATION
  Report Type: Spontaneous
  Country: US (occurrence: US)
  Receive Date: 20220121
  Receipt Date: 20221207
  Transmission Date: 20230113
  Serious: Yes (Hospitalization, Other)
  Sender: FDA-Public Use
  Company Number: US-GILEAD-2022-0565857

PATIENT
  Sex: Male
  Weight: 79.365 kg

DRUGS (54)
  1. TRUVADA [Suspect]
     Active Substance: EMTRICITABINE\TENOFOVIR DISOPROXIL FUMARATE
     Indication: HIV infection
     Dosage: UNK
     Route: 048
     Dates: start: 2004
  2. TRUVADA [Suspect]
     Active Substance: EMTRICITABINE\TENOFOVIR DISOPROXIL FUMARATE
     Dosage: UNK
     Route: 065
     Dates: start: 2010, end: 2012
  3. COMBIVIR [Concomitant]
     Active Substance: LAMIVUDINE\ZIDOVUDINE
  4. EPIVIR [Concomitant]
     Active Substance: LAMIVUDINE
  5. EPZICOM [Concomitant]
     Active Substance: ABACAVIR SULFATE\LAMIVUDINE
  6. ISENTRESS [Concomitant]
     Active Substance: RALTEGRAVIR POTASSIUM
  7. JULUCA [Concomitant]
     Active Substance: DOLUTEGRAVIR SODIUM\RILPIVIRINE HYDROCHLORIDE
  8. NORVIR [Concomitant]
     Active Substance: RITONAVIR
  9. PREZCOBIX [Concomitant]
     Active Substance: COBICISTAT\DARUNAVIR ETHANOLATE
  10. PREZISTA [Concomitant]
     Active Substance: DARUNAVIR ETHANOLATE
  11. RETROVIR [Concomitant]
     Active Substance: ZIDOVUDINE
  12. REYATAZ [Concomitant]
     Active Substance: ATAZANAVIR SULFATE
  13. SUSTIVA [Concomitant]
     Active Substance: EFAVIRENZ
  14. TIVICAY [Concomitant]
     Active Substance: DOLUTEGRAVIR SODIUM
  15. ZIAGEN [Concomitant]
     Active Substance: ABACAVIR SULFATE
  16. DIPHENHYDRAMINE [Concomitant]
     Active Substance: DIPHENHYDRAMINE
  17. LISINOPRIL [Concomitant]
     Active Substance: LISINOPRIL
  18. MICARDIS [Concomitant]
     Active Substance: TELMISARTAN
  19. LORATADINE [Concomitant]
     Active Substance: LORATADINE
  20. VITAMIN C [Concomitant]
     Active Substance: ASCORBIC ACID
  21. DESLORATADINE [Concomitant]
     Active Substance: DESLORATADINE
  22. AMBIEN [Concomitant]
     Active Substance: ZOLPIDEM TARTRATE
  23. FLUTICASONE [Concomitant]
     Active Substance: FLUTICASONE
  24. DAILY-VITE [Concomitant]
  25. PRAVASTATIN [Concomitant]
     Active Substance: PRAVASTATIN
  26. TRAMADOL [Concomitant]
     Active Substance: TRAMADOL
  27. COLCHICINE [Concomitant]
     Active Substance: COLCHICINE
  28. PROBENECID [Concomitant]
     Active Substance: PROBENECID
  29. NASONEX [Concomitant]
     Active Substance: MOMETASONE FUROATE
  30. COLCRYS [Concomitant]
     Active Substance: COLCHICINE
  31. HYDROCHLOROTHIAZIDE [Concomitant]
     Active Substance: HYDROCHLOROTHIAZIDE
  32. IBUPROFEN [Concomitant]
     Active Substance: IBUPROFEN
  33. AMMONIUM LACTATE [Concomitant]
     Active Substance: AMMONIUM LACTATE
  34. ISONIAZID [Concomitant]
     Active Substance: ISONIAZID
  35. PLAVIX [Concomitant]
     Active Substance: CLOPIDOGREL BISULFATE
  36. PYRIDOXINE [Concomitant]
     Active Substance: PYRIDOXINE
  37. FINASTERIDE [Concomitant]
     Active Substance: FINASTERIDE
  38. DILTIAZEM [Concomitant]
     Active Substance: DILTIAZEM
  39. TIZANIDINE [Concomitant]
     Active Substance: TIZANIDINE
  40. ACETAMINOPHEN [Concomitant]
     Active Substance: ACETAMINOPHEN
  41. NUCYNTA [Concomitant]
     Active Substance: TAPENTADOL HYDROCHLORIDE
  42. METOPROLOL [Concomitant]
     Active Substance: METOPROLOL
  43. ASPIRIN [Concomitant]
     Active Substance: ASPIRIN
  44. MOMETASONE [Concomitant]
     Active Substance: MOMETASONE
  45. EPOETIN ALFA [Concomitant]
     Active Substance: ERYTHROPOIETIN
  46. LIDOCAINE [Concomitant]
     Active Substance: LIDOCAINE
  47. ATORVASTATIN [Concomitant]
     Active Substance: ATORVASTATIN
  48. BENADRYL [Concomitant]
     Active Substance: DIPHENHYDRAMINE HYDROCHLORIDE
  49. OMEPRAZOLE [Concomitant]
     Active Substance: OMEPRAZOLE
  50. ROSUVASTATIN [Concomitant]
     Active Substance: ROSUVASTATIN
  51. CLOTRIMAZOLE [Concomitant]
     Active Substance: CLOTRIMAZOLE
  52. LUPRON DEPOT [Concomitant]
     Active Substance: LEUPROLIDE ACETATE
  53. SILDENAFIL [Concomitant]
     Active Substance: SILDENAFIL
  54. SENSIPAR [Concomitant]
     Active Substance: CINACALCET HYDROCHLORIDE

REACTIONS (8)
  - End stage renal disease [Not Recovered/Not Resolved]
  - Pneumonia [Recovered/Resolved]
  - Renal failure [Unknown]
  - Pain [Not Recovered/Not Resolved]
  - Emotional distress [Not Recovered/Not Resolved]
  - Anxiety [Not Recovered/Not Resolved]
  - Anhedonia [Not Recovered/Not Resolved]
  - Loss of personal independence in daily activities [Not Recovered/Not Resolved]

NARRATIVE: CASE EVENT DATE: 20120101
